FAERS Safety Report 9217184 (Version 2)
Quarter: 2014Q1

REPORT INFORMATION
  Report Type: Spontaneous
  Country: CA (occurrence: CA)
  Receive Date: 20130408
  Receipt Date: 20140121
  Transmission Date: 20141002
  Serious: Yes (Hospitalization, Other)
  Sender: FDA-Public Use
  Company Number: CA-009507513-1304CAN002611

PATIENT
  Age: 48 Year
  Sex: Female
  Weight: 70.3 kg

DRUGS (5)
  1. VICTRELIS [Suspect]
     Indication: HEPATITIS C
     Dosage: 800 MG, TID
     Route: 048
     Dates: start: 20130222, end: 20130320
  2. PEGASYS [Concomitant]
     Indication: HEPATITIS C
     Dosage: UNK
     Route: 065
     Dates: start: 20130118
  3. RIBAVIRIN [Concomitant]
     Indication: HEPATITIS C
     Dosage: UNK
     Route: 065
     Dates: start: 20130118
  4. ALESSE-21 [Concomitant]
     Route: 065
  5. PHENOL [Concomitant]
     Indication: RHINITIS
     Route: 065

REACTIONS (42)
  - Convulsion [Recovering/Resolving]
  - Convulsion [Recovering/Resolving]
  - Arthralgia [Recovering/Resolving]
  - Body temperature decreased [Recovering/Resolving]
  - Chills [Recovering/Resolving]
  - Communication disorder [Recovering/Resolving]
  - Convulsion [Recovering/Resolving]
  - Dyspnoea [Recovering/Resolving]
  - Ear pain [Recovering/Resolving]
  - Eye irritation [Recovering/Resolving]
  - Eye pain [Recovering/Resolving]
  - Fatigue [Recovering/Resolving]
  - Feeling abnormal [Recovering/Resolving]
  - Haemoglobin decreased [Recovering/Resolving]
  - Headache [Recovering/Resolving]
  - Hot flush [Recovering/Resolving]
  - Hypoaesthesia [Recovering/Resolving]
  - Loss of consciousness [Recovering/Resolving]
  - Mental impairment [Recovering/Resolving]
  - Neutropenia [Recovering/Resolving]
  - Pain [Recovering/Resolving]
  - Paraesthesia [Recovering/Resolving]
  - Tinnitus [Recovering/Resolving]
  - Tremor [Recovering/Resolving]
  - Alopecia [Recovering/Resolving]
  - Speech disorder [Recovering/Resolving]
  - Disturbance in attention [Recovering/Resolving]
  - Mental impairment [Recovering/Resolving]
  - Aggression [Recovering/Resolving]
  - Irritability [Recovering/Resolving]
  - Insomnia [Recovering/Resolving]
  - Dyspnoea [Recovering/Resolving]
  - Headache [Recovering/Resolving]
  - Burning sensation [Recovering/Resolving]
  - Partial seizures [Recovering/Resolving]
  - Dyskinesia [Recovering/Resolving]
  - Anxiety [Recovering/Resolving]
  - Panic attack [Recovering/Resolving]
  - Neuralgia [Not Recovered/Not Resolved]
  - Tremor [Not Recovered/Not Resolved]
  - Fatigue [Unknown]
  - Confusional state [Unknown]
